FAERS Safety Report 23974412 (Version 1)
Quarter: 2024Q2

REPORT INFORMATION
  Report Type: Spontaneous
  Country: CN (occurrence: CN)
  Receive Date: 20240614
  Receipt Date: 20240614
  Transmission Date: 20240716
  Serious: Yes (Other)
  Sender: FDA-Public Use
  Company Number: CN-NOVITIUMPHARMA-2024CNNVP01027

PATIENT
  Age: 41 Year
  Sex: Male

DRUGS (5)
  1. SILDENAFIL CITRATE [Suspect]
     Active Substance: SILDENAFIL CITRATE
     Indication: Product used for unknown indication
  2. PILOCARPINE [Concomitant]
     Active Substance: PILOCARPINE
     Indication: Angle closure glaucoma
  3. CARTEOLOL [Concomitant]
     Active Substance: CARTEOLOL
     Indication: Angle closure glaucoma
  4. BRIMONIDINE [Concomitant]
     Active Substance: BRIMONIDINE TARTRATE
     Indication: Angle closure glaucoma
  5. BRINZOLAMIDE [Concomitant]
     Active Substance: BRINZOLAMIDE
     Indication: Angle closure glaucoma

REACTIONS (1)
  - Choroidal effusion [Recovered/Resolved]
